FAERS Safety Report 7350546-1 (Version None)
Quarter: 2011Q1

REPORT INFORMATION
  Report Type: 
  Country: None (occurrence: None)
  Receive Date: 20110303
  Receipt Date: 20110223
  Transmission Date: 20110831
  Serious: Yes (Other)
  Sender: FDA-Public Use
  Company Number: 2011MA001709

PATIENT
  Age: 2 Year
  Sex: Male
  Weight: 12 kg

DRUGS (2)
  1. PROPRANOLOL HCL [Suspect]
     Indication: LONG QT SYNDROME
     Dosage: 12 MG;TID
  2. B-ADRENERGIC RECEPTOR ANTAGONISTS (PREV.) [Concomitant]

REACTIONS (5)
  - HYPOGLYCAEMIA [None]
  - HYPOTONIA [None]
  - UNRESPONSIVE TO STIMULI [None]
  - SYNCOPE [None]
  - BRADYCARDIA [None]
